FAERS Safety Report 19314128 (Version 1)
Quarter: 2021Q2

REPORT INFORMATION
  Report Type: Spontaneous
  Country: US (occurrence: US)
  Receive Date: 20210527
  Receipt Date: 20210527
  Transmission Date: 20210717
  Serious: No
  Sender: FDA-Public Use
  Company Number: None

PATIENT
  Age: 49 Year
  Sex: Female

DRUGS (7)
  1. VERZENIO [Suspect]
     Active Substance: ABEMACICLIB
     Indication: BREAST CANCER
     Route: 048
     Dates: start: 20210407, end: 20210501
  2. LORAZEPAM 1 MG [Concomitant]
     Active Substance: LORAZEPAM
     Dates: start: 20210412
  3. PERCOCET 5/325 MG [Concomitant]
     Dates: start: 20210412
  4. LISINOPRIL 20 MG [Concomitant]
     Active Substance: LISINOPRIL
     Dates: start: 20210412
  5. VITAMIN D2 [Concomitant]
     Active Substance: ERGOCALCIFEROL
     Dates: start: 20210412
  6. LETROZOLE 2.5 MG [Concomitant]
     Active Substance: LETROZOLE
     Dates: start: 20210412
  7. ZOFRAN ODT [Concomitant]
     Active Substance: ONDANSETRON HYDROCHLORIDE
     Dates: start: 20210412

REACTIONS (2)
  - Drug intolerance [None]
  - Diarrhoea [None]

NARRATIVE: CASE EVENT DATE: 20210520
